FAERS Safety Report 16912393 (Version 1)
Quarter: 2019Q4

REPORT INFORMATION
  Report Type: Report from Study
  Country: CA (occurrence: CA)
  Receive Date: 20191014
  Receipt Date: 20191014
  Transmission Date: 20200122
  Serious: No
  Sender: FDA-Public Use
  Company Number: CA-BEH-2019099156

PATIENT
  Sex: Female

DRUGS (4)
  1. RUP AL [Concomitant]
     Active Substance: RUPATADINE FUMARATE
     Indication: ANTIALLERGIC THERAPY
  2. HIZENTRA [Suspect]
     Active Substance: HUMAN IMMUNOGLOBULIN G
     Indication: POSTURAL ORTHOSTATIC TACHYCARDIA SYNDROME
     Dosage: 20 G, QW
     Route: 058
     Dates: start: 20150305
  3. HIZENTRA [Suspect]
     Active Substance: HUMAN IMMUNOGLOBULIN G
     Dosage: 8 GRAM, QMT
     Route: 058
  4. RUP AL [Concomitant]
     Active Substance: RUPATADINE FUMARATE
     Indication: ANTIALLERGIC THERAPY

REACTIONS (8)
  - Drug ineffective for unapproved indication [Not Recovered/Not Resolved]
  - No adverse event [Unknown]
  - Treatment noncompliance [Unknown]
  - Postural orthostatic tachycardia syndrome [Not Recovered/Not Resolved]
  - Malaise [Unknown]
  - Nasopharyngitis [Unknown]
  - Product dose omission [Unknown]
  - Sinusitis [Unknown]

NARRATIVE: CASE EVENT DATE: 2019
